FAERS Safety Report 20693144 (Version 2)
Quarter: 2024Q1

REPORT INFORMATION
  Report Type: Spontaneous
  Country: ES (occurrence: ES)
  Receive Date: 20220410
  Receipt Date: 20240226
  Transmission Date: 20240410
  Serious: Yes (Hospitalization, Other)
  Sender: FDA-Public Use
  Company Number: ES-Accord-259883

PATIENT
  Age: 40 Year
  Sex: Female

DRUGS (4)
  1. FINGOLIMOD [Suspect]
     Active Substance: FINGOLIMOD
     Indication: Multiple sclerosis
  2. MEFLOQUINE HYDROCHLORIDE [Concomitant]
     Active Substance: MEFLOQUINE HYDROCHLORIDE
     Indication: Immune reconstitution inflammatory syndrome
  3. MIRTAZAPINE [Concomitant]
     Active Substance: MIRTAZAPINE
     Indication: Immune reconstitution inflammatory syndrome
  4. LITHIUM [Concomitant]
     Active Substance: LITHIUM
     Indication: Bipolar disorder

REACTIONS (4)
  - Progressive multifocal leukoencephalopathy [Recovered/Resolved]
  - Immune reconstitution inflammatory syndrome [Recovered/Resolved]
  - Lymphopenia [Recovering/Resolving]
  - Drug withdrawal syndrome [Recovering/Resolving]
